FAERS Safety Report 8568237 (Version 2)
Quarter: 2013Q2

REPORT INFORMATION
  Report Type: Report from Study
  Country: MX (occurrence: MX)
  Receive Date: 20120518
  Receipt Date: 20130506
  Transmission Date: 20140414
  Serious: Yes (Death, Hospitalization, Other)
  Sender: FDA-Public Use
  Company Number: PHHY2012MX041565

PATIENT
  Sex: Female

DRUGS (1)
  1. GLIVEC [Suspect]
     Indication: CHRONIC MYELOID LEUKAEMIA
     Dosage: 400 MG
     Dates: start: 20110615

REACTIONS (7)
  - Death [Fatal]
  - Hepatic cirrhosis [Unknown]
  - Cholelithiasis [Unknown]
  - Chronic hepatitis [Unknown]
  - Hepatic failure [Unknown]
  - Renal failure [Unknown]
  - Respiratory failure [Unknown]
